FAERS Safety Report 23919974 (Version 1)
Quarter: 2024Q2

REPORT INFORMATION
  Report Type: Spontaneous
  Country: US (occurrence: None)
  Receive Date: 20240529
  Receipt Date: 20240529
  Transmission Date: 20240716
  Serious: Yes (Hospitalization)
  Sender: FDA-Public Use
  Company Number: None

PATIENT
  Age: 83 Year
  Sex: Female

DRUGS (1)
  1. XALKORI [Suspect]
     Active Substance: CRIZOTINIB
     Indication: Lung neoplasm malignant
     Dosage: OTHER FREQUENCY : TWICEADAY MON-FRI;?
     Route: 048
     Dates: start: 201910

REACTIONS (2)
  - Blood potassium increased [None]
  - Cardiac failure [None]

NARRATIVE: CASE EVENT DATE: 20240501
